FAERS Safety Report 6752463-4 (Version None)
Quarter: 2010Q2

REPORT INFORMATION
  Report Type: 
  Country: None (occurrence: None)
  Receive Date: 20100601
  Receipt Date: 20100601
  Transmission Date: 20101027
  Serious: Yes (Life-Threatening, Hospitalization)
  Sender: FDA-Public Use
  Company Number: None

PATIENT
  Age: 59 Year
  Sex: Female
  Weight: 74.8435 kg

DRUGS (1)
  1. AVELOX [Suspect]
     Indication: SINUSITIS
     Dosage: 400 MG 1 PER PO
     Route: 048
     Dates: start: 20070426, end: 20070430

REACTIONS (3)
  - COLITIS ISCHAEMIC [None]
  - MALAISE [None]
  - PRODUCT QUALITY ISSUE [None]
